FAERS Safety Report 11727725 (Version 1)
Quarter: 2015Q4

REPORT INFORMATION
  Report Type: Spontaneous
  Country: CA (occurrence: CA)
  Receive Date: 20151112
  Receipt Date: 20151112
  Transmission Date: 20160304
  Serious: Yes (Death, Life-Threatening, Hospitalization, Other)
  Sender: FDA-Public Use
  Company Number: CA-JNJFOC-20151110674

PATIENT
  Age: 60 Year
  Sex: Female
  Weight: 59 kg

DRUGS (4)
  1. SYMBICORT [Concomitant]
     Active Substance: BUDESONIDE\FORMOTEROL FUMARATE DIHYDRATE
     Route: 065
  2. INDAPAMIDE. [Concomitant]
     Active Substance: INDAPAMIDE
     Route: 065
  3. PERINDOPRIL [Concomitant]
     Active Substance: PERINDOPRIL
     Route: 065
  4. STELARA [Suspect]
     Active Substance: USTEKINUMAB
     Indication: PSORIASIS
     Dosage: THERAPY DURATION 10 YEARS
     Route: 058

REACTIONS (8)
  - Peripheral embolism [Unknown]
  - Endocarditis bacterial [Unknown]
  - Mesenteric artery embolism [Fatal]
  - Renal embolism [Fatal]
  - Propionibacterium test positive [Unknown]
  - Hepatic artery embolism [Unknown]
  - Splenic embolism [Fatal]
  - Actinomyces test positive [Unknown]
